FAERS Safety Report 17736786 (Version 1)
Quarter: 2020Q2

REPORT INFORMATION
  Report Type: Spontaneous
  Country: US (occurrence: US)
  Receive Date: 20200502
  Receipt Date: 20200502
  Transmission Date: 20200714
  Serious: Yes (Hospitalization, Other)
  Sender: FDA-Public Use
  Company Number: US-CPL-001721

PATIENT
  Age: 64 Year
  Sex: Female

DRUGS (18)
  1. HYDRALAZINE/HYDRALAZINE HYDROCHLORIDE [Suspect]
     Active Substance: HYDRALAZINE HYDROCHLORIDE
     Indication: PRODUCT USED FOR UNKNOWN INDICATION
  2. IBUPROFEN. [Concomitant]
     Active Substance: IBUPROFEN
  3. AMIODARONE [Concomitant]
     Active Substance: AMIODARONE
  4. CETIRIZINE [Concomitant]
     Active Substance: CETIRIZINE HYDROCHLORIDE
  5. IRON [Concomitant]
     Active Substance: IRON
  6. CHLORZOXAZONE. [Concomitant]
     Active Substance: CHLORZOXAZONE
  7. PRAVASTATIN. [Concomitant]
     Active Substance: PRAVASTATIN
  8. FLUTICASONE. [Concomitant]
     Active Substance: FLUTICASONE
  9. AMLODIPINE [Concomitant]
     Active Substance: AMLODIPINE BESYLATE
  10. METOPROLOL. [Concomitant]
     Active Substance: METOPROLOL
  11. ZOLPIDEM [Concomitant]
     Active Substance: ZOLPIDEM TARTRATE
  12. CYCLOBENZAPRINE. [Concomitant]
     Active Substance: CYCLOBENZAPRINE
  13. PANTOPRAZOLE [Concomitant]
     Active Substance: PANTOPRAZOLE
  14. LOSARTAN. [Concomitant]
     Active Substance: LOSARTAN
  15. DOCUSATE [Concomitant]
     Active Substance: DOCUSATE
  16. ACETYLSALICYLIC ACID [Concomitant]
     Active Substance: ASPIRIN
  17. GABAPENTIN. [Concomitant]
     Active Substance: GABAPENTIN
  18. TRAZODONE [Concomitant]
     Active Substance: TRAZODONE HYDROCHLORIDE

REACTIONS (2)
  - Anti-neutrophil cytoplasmic antibody positive vasculitis [Recovered/Resolved]
  - Pulmonary renal syndrome [Recovered/Resolved]
